FAERS Safety Report 12968785 (Version 1)
Quarter: 2016Q4

REPORT INFORMATION
  Report Type: Spontaneous
  Country: GB (occurrence: GB)
  Receive Date: 20161123
  Receipt Date: 20161123
  Transmission Date: 20170207
  Serious: Yes (Life-Threatening)
  Sender: FDA-Public Use
  Company Number: GB-TEVA-713775ACC

PATIENT
  Age: 44 Year
  Sex: Female
  Weight: 96 kg

DRUGS (15)
  1. CETRABEN EMOLLIENT CREAM [Concomitant]
     Dosage: USE AS DIRECTED
     Dates: start: 20161101
  2. FERROUS GLUCONATE [Concomitant]
     Active Substance: FERROUS GLUCONATE
     Dosage: 2 DOSAGE FORMS DAILY;
     Dates: start: 20160304
  3. RELVAR ELLIPTA [Concomitant]
     Active Substance: FLUTICASONE FUROATE\VILANTEROL TRIFENATATE
     Dosage: 1 DOSAGE FORMS DAILY;
     Route: 055
     Dates: start: 20160511
  4. TRAMADOL. [Concomitant]
     Active Substance: TRAMADOL
     Dosage: 1-2 UP TO FOUR TIMES DAILY WHEN REQUIRED (MAX 8...
     Dates: start: 20160110
  5. VENTOLIN [Concomitant]
     Active Substance: ALBUTEROL SULFATE
     Route: 055
     Dates: start: 20160304
  6. PRAVASTATIN. [Concomitant]
     Active Substance: PRAVASTATIN
     Dosage: 1 DOSAGE FORMS DAILY; NOCTE
     Dates: start: 20161025
  7. CALCEOS [Concomitant]
     Active Substance: CALCIUM CARBONATE\CHOLECALCIFEROL
     Dosage: 2 DOSAGE FORMS DAILY;
     Dates: start: 20160304
  8. RAMIPRIL. [Concomitant]
     Active Substance: RAMIPRIL
     Dosage: 1 DOSAGE FORMS DAILY;
     Dates: start: 20160304
  9. LANSOPRAZOLE. [Concomitant]
     Active Substance: LANSOPRAZOLE
     Dosage: 1 DOSAGE FORMS DAILY;
     Dates: start: 20160304
  10. LAXIDO [Concomitant]
     Active Substance: POLYETHYLENE GLYCOL 3350\POTASSIUM CHLORIDE\SODIUM BICARBONATE\SODIUM CHLORIDE
     Dosage: 2 DOSAGE FORMS DAILY;
     Dates: start: 20160304
  11. METFORMIN [Concomitant]
     Active Substance: METFORMIN HYDROCHLORIDE
     Dosage: 1 DOSAGE FORMS DAILY; WITH EVENING MEAL
     Dates: start: 20160304
  12. MOMETASONE [Concomitant]
     Active Substance: MOMETASONE
     Dosage: 1 DOSAGE FORMS DAILY;
     Dates: start: 20161031
  13. HYDROXOCOBALAMIN [Concomitant]
     Active Substance: HYDROXOCOBALAMIN
     Dosage: MAINTENANCE  (FOR PRACTICE ADM...
     Dates: start: 20161017, end: 20161018
  14. TRIMETHOPRIM. [Suspect]
     Active Substance: TRIMETHOPRIM
     Dates: start: 20161102
  15. PREDNISOLONE. [Concomitant]
     Active Substance: PREDNISOLONE
     Dosage: 6  A DAY THEN 5 A DAY THEN 4 A DAY THEN 3 DAY T...
     Dates: start: 20161102

REACTIONS (2)
  - Throat tightness [Unknown]
  - Rash erythematous [Recovering/Resolving]
